FAERS Safety Report 5064756-X (Version None)
Quarter: 2006Q3

REPORT INFORMATION
  Report Type: 
  Country: None (occurrence: None)
  Receive Date: 20060728
  Receipt Date: 20060718
  Transmission Date: 20061208
  Serious: Yes (Death)
  Sender: FDA-Public Use
  Company Number: PT-ROCHE-456018

PATIENT
  Age: 65 Year
  Sex: Male
  Weight: 66 kg

DRUGS (2)
  1. XELODA [Suspect]
     Dosage: PATIENT TOOK 2 TABLETS OF 150 MG AND 6 TABLETS OF 500 MG DAILY
     Route: 048
     Dates: start: 20060615, end: 20060617
  2. ALPRAZOLAM [Concomitant]
     Route: 048

REACTIONS (4)
  - CARDIOPULMONARY FAILURE [None]
  - CHEST PAIN [None]
  - DEATH [None]
  - MALAISE [None]
